FAERS Safety Report 12629845 (Version 1)
Quarter: 2016Q3

REPORT INFORMATION
  Report Type: Spontaneous
  Country: NL (occurrence: NL)
  Receive Date: 20160808
  Receipt Date: 20160808
  Transmission Date: 20161109
  Serious: Yes (Hospitalization)
  Sender: FDA-Public Use
  Company Number: NL-IPCA LABORATORIES LIMITED-IPC201607-000651

PATIENT
  Age: 25 Year
  Sex: Male

DRUGS (3)
  1. HYDROXYCHLOROQUINE SULFATE. [Suspect]
     Active Substance: HYDROXYCHLOROQUINE SULFATE
  2. DOMPERIDONE [Suspect]
     Active Substance: DOMPERIDONE
  3. CODEINE [Suspect]
     Active Substance: CODEINE

REACTIONS (5)
  - Hypokalaemia [Recovered/Resolved]
  - Intentional overdose [Unknown]
  - Electrocardiogram QT prolonged [Recovered/Resolved]
  - Toxicity to various agents [Unknown]
  - Vomiting [Recovered/Resolved]
